FAERS Safety Report 16778207 (Version 5)
Quarter: 2020Q4

REPORT INFORMATION
  Report Type: Spontaneous
  Country: US (occurrence: US)
  Receive Date: 20190905
  Receipt Date: 20201117
  Transmission Date: 20210113
  Serious: Yes (Hospitalization, Other)
  Sender: FDA-Public Use
  Company Number: US-ASTRAZENECA-2019SF25700

PATIENT
  Age: 20740 Day
  Sex: Female
  Weight: 59.9 kg

DRUGS (12)
  1. LYNPARZA [Suspect]
     Active Substance: OLAPARIB
     Indication: BREAST CANCER FEMALE
     Dosage: 150MG EVERY MORNING, 300MG AT NIGHT.
     Route: 048
     Dates: start: 20190424, end: 20190807
  2. LYNPARZA [Suspect]
     Active Substance: OLAPARIB
     Indication: MALIGNANT PERITONEAL NEOPLASM
     Dosage: 150MG EVERY MORNING, 300MG AT NIGHT.
     Route: 048
     Dates: start: 20190424, end: 20190807
  3. CALTRATE [Concomitant]
     Active Substance: CALCIUM CARBONATE
     Dosage: 1 TABLET DAILY
  4. TYLENOL [Concomitant]
     Active Substance: ACETAMINOPHEN
  5. PEPCID [Concomitant]
     Active Substance: FAMOTIDINE
  6. LYNPARZA [Suspect]
     Active Substance: OLAPARIB
     Indication: BRCA1 GENE MUTATION
     Dosage: 150MG EVERY MORNING, 300MG AT NIGHT.
     Route: 048
     Dates: start: 20190424, end: 20190807
  7. LYNPARZA [Suspect]
     Active Substance: OLAPARIB
     Indication: MALIGNANT PERITONEAL NEOPLASM
     Route: 048
     Dates: start: 2019
  8. LYNPARZA [Suspect]
     Active Substance: OLAPARIB
     Indication: BREAST CANCER FEMALE
     Route: 048
     Dates: start: 2019
  9. LYNPARZA [Suspect]
     Active Substance: OLAPARIB
     Indication: BRCA1 GENE MUTATION
     Route: 048
     Dates: start: 2019
  10. CENTRUM SILVER [Concomitant]
     Active Substance: MINERALS\VITAMINS
     Dosage: 1 TABLET DAILY
  11. LYNPARZA [Suspect]
     Active Substance: OLAPARIB
     Indication: OVARIAN CANCER
     Route: 048
     Dates: start: 2019
  12. LYNPARZA [Suspect]
     Active Substance: OLAPARIB
     Indication: OVARIAN CANCER
     Dosage: 150MG EVERY MORNING, 300MG AT NIGHT.
     Route: 048
     Dates: start: 20190424, end: 20190807

REACTIONS (5)
  - Jaundice [Recovered/Resolved]
  - Acute hepatic failure [Recovered/Resolved]
  - Drug-induced liver injury [Unknown]
  - Hepatitis cholestatic [Unknown]
  - Cholangitis acute [Unknown]

NARRATIVE: CASE EVENT DATE: 20190809
